FAERS Safety Report 9295300 (Version 1)
Quarter: 2013Q2

REPORT INFORMATION
  Report Type: Spontaneous
  Country: US (occurrence: None)
  Receive Date: 20130516
  Receipt Date: 20130516
  Transmission Date: 20140414
  Serious: No
  Sender: FDA-Public Use
  Company Number: None

PATIENT
  Age: 46 None
  Sex: Female

DRUGS (1)
  1. AVONEX [Suspect]
     Indication: MULTIPLE SCLEROSIS
     Route: 030
     Dates: start: 20130423

REACTIONS (6)
  - Influenza like illness [None]
  - Convulsion [None]
  - Enuresis [None]
  - Emotional disorder [None]
  - Dyskinesia [None]
  - Urinary tract infection [None]
